FAERS Safety Report 16577393 (Version 2)
Quarter: 2019Q3

REPORT INFORMATION
  Report Type: Spontaneous
  Country: CZ (occurrence: CZ)
  Receive Date: 20190716
  Receipt Date: 20190730
  Transmission Date: 20191004
  Serious: Yes (Life-Threatening, Hospitalization, Other)
  Sender: FDA-Public Use
  Company Number: CZ-SA-2019SA189280

PATIENT
  Age: 61 Year
  Sex: Male

DRUGS (9)
  1. OXALIPLATIN. [Suspect]
     Active Substance: OXALIPLATIN
     Indication: RECTAL CANCER
  2. 5-FLUOROURACIL [FLUOROURACIL] [Suspect]
     Active Substance: FLUOROURACIL
     Indication: METASTASES TO LIVER
  3. 5-FLUOROURACIL [FLUOROURACIL] [Suspect]
     Active Substance: FLUOROURACIL
     Indication: RECTAL CANCER
  4. FOLINIC ACID [Suspect]
     Active Substance: LEUCOVORIN
     Indication: RECTAL CANCER
  5. OXALIPLATIN. [Suspect]
     Active Substance: OXALIPLATIN
     Indication: LYMPHADENOPATHY
     Dosage: UNK, INFUSION
     Dates: start: 201804
  6. 5-FLUOROURACIL [FLUOROURACIL] [Suspect]
     Active Substance: FLUOROURACIL
     Indication: LYMPHADENOPATHY
     Dosage: UNK
     Dates: start: 201804
  7. FOLINIC ACID [Suspect]
     Active Substance: LEUCOVORIN
     Indication: METASTASES TO LIVER
  8. OXALIPLATIN. [Suspect]
     Active Substance: OXALIPLATIN
     Indication: METASTASES TO LIVER
  9. FOLINIC ACID [Suspect]
     Active Substance: LEUCOVORIN
     Indication: LYMPHADENOPATHY
     Dosage: UNK
     Dates: start: 201804

REACTIONS (13)
  - Haemolytic anaemia [Recovering/Resolving]
  - C-reactive protein increased [Recovering/Resolving]
  - Blood creatinine increased [Recovering/Resolving]
  - Haemolytic uraemic syndrome [Recovering/Resolving]
  - Thrombotic thrombocytopenic purpura [Recovering/Resolving]
  - Platelet count decreased [Recovering/Resolving]
  - Coombs direct test positive [Recovering/Resolving]
  - Liver function test increased [Recovering/Resolving]
  - Thrombocytopenia [Recovering/Resolving]
  - Body temperature increased [Recovering/Resolving]
  - Procalcitonin increased [Recovering/Resolving]
  - Haemolysis [Recovering/Resolving]
  - Type II hypersensitivity [Recovering/Resolving]

NARRATIVE: CASE EVENT DATE: 2018
